FAERS Safety Report 10149589 (Version 5)
Quarter: 2016Q1

REPORT INFORMATION
  Report Type: Spontaneous
  Country: US (occurrence: US)
  Receive Date: 20140502
  Receipt Date: 20160323
  Transmission Date: 20160525
  Serious: No
  Sender: FDA-Public Use
  Company Number: US-PFIZER INC-2014119511

PATIENT
  Age: 74 Year
  Sex: Male
  Weight: 72.56 kg

DRUGS (4)
  1. SUTENT [Suspect]
     Active Substance: SUNITINIB MALATE
     Indication: GASTRIC CANCER
     Dosage: UNK
  2. SUTENT [Suspect]
     Active Substance: SUNITINIB MALATE
     Indication: PANCREATIC CARCINOMA
  3. SUTENT [Suspect]
     Active Substance: SUNITINIB MALATE
     Indication: RENAL CANCER
  4. SUTENT [Suspect]
     Active Substance: SUNITINIB MALATE
     Indication: HEPATIC CANCER
     Dosage: 25 MG, CYCLIC (DAILY FOR 4 WEEKS AND 2 WEEKS OFF)
     Route: 048
     Dates: start: 201402

REACTIONS (7)
  - Feeling abnormal [Recovered/Resolved]
  - Disease progression [Unknown]
  - Insomnia [Recovered/Resolved]
  - Drug dose omission [Recovered/Resolved]
  - Blood glucose increased [Unknown]
  - Product use issue [Unknown]
  - Gastric cancer [Unknown]

NARRATIVE: CASE EVENT DATE: 201402
